FAERS Safety Report 23893803 (Version 1)
Quarter: 2024Q2

REPORT INFORMATION
  Report Type: Spontaneous
  Country: US (occurrence: None)
  Receive Date: 20240524
  Receipt Date: 20240524
  Transmission Date: 20240716
  Serious: No
  Sender: FDA-Public Use
  Company Number: US-ROCHE-3363166

PATIENT
  Age: 77 Year
  Sex: Female
  Weight: 64.922 kg

DRUGS (7)
  1. ACTEMRA [Suspect]
     Active Substance: TOCILIZUMAB
     Indication: Giant cell arteritis
     Dosage: STRENGTH: 162MG/0.9ML
     Route: 058
     Dates: start: 20230310
  2. ACTEMRA [Suspect]
     Active Substance: TOCILIZUMAB
  3. AMLODIPINE [Concomitant]
     Active Substance: AMLODIPINE BESYLATE
     Indication: Blood pressure measurement
     Dates: start: 202211
  4. ATORVASTATIN [Concomitant]
     Active Substance: ATORVASTATIN
     Indication: Blood cholesterol
     Dates: start: 202211
  5. PANTOPRAZOLE [Concomitant]
     Active Substance: PANTOPRAZOLE
     Indication: Dyspepsia
     Dates: start: 202211
  6. PRILOSEC [Concomitant]
     Active Substance: OMEPRAZOLE MAGNESIUM
     Indication: Dyspepsia
     Dates: end: 202211
  7. ASPIRIN [Concomitant]
     Active Substance: ASPIRIN
     Dosage: INDICATION : BLOOD THIN
     Dates: start: 202211

REACTIONS (3)
  - Product administered at inappropriate site [Recovered/Resolved]
  - Joint swelling [Recovering/Resolving]
  - Injury associated with device [Unknown]

NARRATIVE: CASE EVENT DATE: 20230401
